FAERS Safety Report 14966865 (Version 1)
Quarter: 2018Q2

REPORT INFORMATION
  Report Type: Spontaneous
  Country: CO (occurrence: CO)
  Receive Date: 20180604
  Receipt Date: 20180604
  Transmission Date: 20180711
  Serious: No
  Sender: FDA-Public Use
  Company Number: CO-CHEPLA-1910360

PATIENT
  Age: 44 Year
  Sex: Male
  Weight: 94 kg

DRUGS (2)
  1. XENICAL [Suspect]
     Active Substance: ORLISTAT
     Indication: OBESITY
     Dosage: 120 MG EVERY 24 HOURS
     Route: 048
     Dates: start: 20170302, end: 20170315
  2. XENICAL [Suspect]
     Active Substance: ORLISTAT
     Indication: OBESITY
     Dosage: HE SOMETIMES TAKES 240 MG EVERY 24 HOURS
     Route: 048

REACTIONS (2)
  - No adverse event [Unknown]
  - Treatment failure [Unknown]
